FAERS Safety Report 20701753 (Version 1)
Quarter: 2022Q2

REPORT INFORMATION
  Report Type: Spontaneous
  Country: US (occurrence: None)
  Receive Date: 20220411
  Receipt Date: 20220411
  Transmission Date: 20220720
  Serious: Yes (unspecified)
  Sender: FDA-Public Use
  Company Number: None

PATIENT
  Age: 78 Year
  Sex: Female
  Weight: 67.4 kg

DRUGS (1)
  1. RITUXAN [Suspect]
     Active Substance: RITUXIMAB
     Indication: Lymphoma
     Dosage: OTHER FREQUENCY : WEEKLY;?
     Route: 041
     Dates: start: 20220407

REACTIONS (8)
  - Chills [None]
  - Nausea [None]
  - Infusion related reaction [None]
  - Blood pressure decreased [None]
  - Chills [None]
  - Erythema [None]
  - Erythema [None]
  - Therapy interrupted [None]

NARRATIVE: CASE EVENT DATE: 20220407
